FAERS Safety Report 5954854-8 (Version None)
Quarter: 2008Q4

REPORT INFORMATION
  Report Type: 
  Country: None (occurrence: None)
  Receive Date: 20081117
  Receipt Date: 20081110
  Transmission Date: 20090506
  Serious: Yes (Hospitalization)
  Sender: FDA-Public Use
  Company Number: DE-ABBOTT-08P-062-0487101-00

PATIENT
  Sex: Female
  Weight: 70 kg

DRUGS (6)
  1. HUMIRA [Suspect]
     Indication: POLYARTHRITIS
     Route: 058
     Dates: start: 20070501
  2. METHOTREXATE SODIUM [Concomitant]
     Indication: POLYARTHRITIS
     Dosage: 7.5 MG PER WEEK
     Route: 058
     Dates: start: 20010101
  3. METHYLPREDNISOLONE 16MG TAB [Concomitant]
     Indication: POLYARTHRITIS
     Dosage: 2MG-4MG
     Dates: start: 20010101
  4. ALENDRONATE SODIUM [Concomitant]
     Indication: OSTEOPOROSIS
     Dosage: 70 MG PER WEEK
     Dates: start: 20041201
  5. LEKOVIT CA [Concomitant]
     Indication: OSTEOPOROSIS
     Dosage: OPD
     Dates: start: 20010101
  6. PROXEN S [Concomitant]
     Indication: POLYARTHRITIS
     Dosage: OPD
     Dates: start: 20010101

REACTIONS (1)
  - RETINAL DETACHMENT [None]
